FAERS Safety Report 4638526-8 (Version None)
Quarter: 2005Q2

REPORT INFORMATION
  Report Type: 
  Country: None (occurrence: None)
  Receive Date: 20050418
  Receipt Date: 20050418
  Transmission Date: 20051028
  Serious: No
  Sender: FDA-Public Use
  Company Number: None

PATIENT
  Sex: Male
  Weight: 73 kg

DRUGS (8)
  1. CISPLATIN [Suspect]
     Indication: BONE SARCOMA
     Dosage: SEE IMAGE
     Route: 042
     Dates: start: 20050226
  2. CISPLATIN [Suspect]
     Indication: BONE SARCOMA
     Dosage: SEE IMAGE
     Route: 042
     Dates: start: 20050227
  3. CISPLATIN [Suspect]
     Indication: BONE SARCOMA
     Dosage: SEE IMAGE
     Route: 042
     Dates: start: 20050318
  4. CISPLATIN [Suspect]
     Indication: BONE SARCOMA
     Dosage: SEE IMAGE
     Route: 042
     Dates: start: 20050319
  5. DOXORUBICIN HCL [Suspect]
     Dosage: SEE IMAGE
     Route: 042
     Dates: start: 20050226
  6. DOXORUBICIN HCL [Suspect]
     Dosage: SEE IMAGE
     Route: 042
     Dates: start: 20050227
  7. DOXORUBICIN HCL [Suspect]
     Dosage: SEE IMAGE
     Route: 042
     Dates: start: 20050318
  8. DOXORUBICIN HCL [Suspect]
     Dosage: SEE IMAGE
     Route: 042
     Dates: start: 20050319

REACTIONS (2)
  - LUNG CANCER METASTATIC [None]
  - RESPIRATORY FAILURE [None]
